APPROVED DRUG PRODUCT: ERTAPENEM SODIUM
Active Ingredient: ERTAPENEM SODIUM
Strength: EQ 1GM BASE/VIAL
Dosage Form/Route: INJECTABLE;INTRAMUSCULAR, INTRAVENOUS
Application: A218067 | Product #001 | TE Code: AP
Applicant: QILU ANTIBIOTICS PHARMACEUTICAL CO LTD
Approved: Oct 31, 2024 | RLD: No | RS: No | Type: RX